FAERS Safety Report 6894890-0 (Version None)
Quarter: 2010Q3

REPORT INFORMATION
  Report Type: 
  Country: None (occurrence: None)
  Receive Date: 20100802
  Receipt Date: 20100727
  Transmission Date: 20110219
  Serious: Yes (Hospitalization)
  Sender: FDA-Public Use
  Company Number: IN-ROCHE-641888

PATIENT
  Sex: Female

DRUGS (3)
  1. TRASTUZUMAB [Suspect]
     Dosage: LOADING DOSE
     Route: 042
     Dates: start: 20090514
  2. TRASTUZUMAB [Suspect]
     Route: 042
  3. PACLITAXEL [Suspect]
     Dosage: THERAPY DURATION FOR 12 WEEKS
     Route: 042
     Dates: start: 20090514

REACTIONS (3)
  - ANAEMIA [None]
  - HAEMOPTYSIS [None]
  - LOWER RESPIRATORY TRACT INFECTION [None]
